FAERS Safety Report 12972860 (Version 1)
Quarter: 2016Q4

REPORT INFORMATION
  Report Type: Spontaneous
  Country: US (occurrence: US)
  Receive Date: 20161124
  Receipt Date: 20161124
  Transmission Date: 20170207
  Serious: Yes (Hospitalization, Other)
  Sender: FDA-Public Use
  Company Number: US-APOTEX-2016AP014934

PATIENT
  Age: 59 Year
  Sex: Female

DRUGS (1)
  1. VALPROIC ACID ORAL SOLUTION USP [Suspect]
     Active Substance: VALPROIC ACID
     Indication: PRODUCT USED FOR UNKNOWN INDICATION
     Route: 065

REACTIONS (5)
  - Acute kidney injury [Unknown]
  - Hyperammonaemic encephalopathy [Recovered/Resolved]
  - Cystitis [Unknown]
  - Asterixis [Recovered/Resolved]
  - Tremor [Recovered/Resolved]
